FAERS Safety Report 6951991-6 (Version None)
Quarter: 2010Q3

REPORT INFORMATION
  Report Type: 
  Country: None (occurrence: None)
  Receive Date: 20100829
  Receipt Date: 20100419
  Transmission Date: 20110219
  Serious: No
  Sender: FDA-Public Use
  Company Number: US-ABBOTT-10P-163-0640267-00

PATIENT
  Age: 64 Year
  Sex: Male
  Weight: 88.53 kg

DRUGS (11)
  1. NIASPAN [Suspect]
     Indication: BLOOD CHOLESTEROL INCREASED
     Dates: start: 20100413
  2. NIASPAN [Suspect]
     Indication: BLOOD TRIGLYCERIDES INCREASED
  3. GLIPIZIDE [Concomitant]
     Indication: DIABETES MELLITUS
  4. ACIPHEX [Concomitant]
     Indication: GASTRIC DISORDER
  5. METOPROLOL TARTRATE [Concomitant]
     Indication: HYPERTENSION
  6. CRESTOR [Concomitant]
     Indication: BLOOD CHOLESTEROL INCREASED
  7. TRILIPIX [Concomitant]
     Indication: BLOOD CHOLESTEROL INCREASED
  8. FLUOXOTINE [Concomitant]
     Indication: PRODUCT USED FOR UNKNOWN INDICATION
  9. ACTOS [Concomitant]
     Indication: DIABETES MELLITUS
  10. AMBIEN [Concomitant]
     Indication: INSOMNIA
  11. BYETTA [Concomitant]
     Indication: DIABETES MELLITUS

REACTIONS (4)
  - ABDOMINAL DISCOMFORT [None]
  - ABDOMINAL DISTENSION [None]
  - ARTHRALGIA [None]
  - MYALGIA [None]
